FAERS Safety Report 5222369-0 (Version None)
Quarter: 2007Q1

REPORT INFORMATION
  Report Type: 
  Country: None (occurrence: None)
  Receive Date: 20070129
  Receipt Date: 20070110
  Transmission Date: 20070707
  Serious: Yes (Death, Congenital Anomaly)
  Sender: FDA-Public Use
  Company Number: FR-BRISTOL-MYERS SQUIBB COMPANY-13643705

PATIENT
  Sex: Male
  Weight: 2 kg

DRUGS (2)
  1. GLUCOPHAGE [Suspect]
     Indication: DIABETES MELLITUS
     Route: 064
     Dates: start: 20050309, end: 20050709
  2. INSULIN [Suspect]
     Indication: DIABETES MELLITUS
     Route: 064
     Dates: start: 20050709, end: 20060119

REACTIONS (4)
  - CONGENITAL GENITOURINARY ABNORMALITY [None]
  - CONGENITAL MUSCULOSKELETAL ANOMALY [None]
  - DRUG EXPOSURE DURING PREGNANCY [None]
  - INTRA-UTERINE DEATH [None]
